FAERS Safety Report 13777965 (Version 2)
Quarter: 2017Q3

REPORT INFORMATION
  Report Type: Spontaneous
  Country: CA (occurrence: CA)
  Receive Date: 20170721
  Receipt Date: 20170811
  Transmission Date: 20171127
  Serious: Yes (Death, Other)
  Sender: FDA-Public Use
  Company Number: CA-PURDUE PHARMA-CAN-2017-0007779

PATIENT
  Sex: Male

DRUGS (2)
  1. OXYNEO [Suspect]
     Active Substance: OXYCODONE
     Indication: BACK PAIN
     Dosage: UNK
     Route: 065
  2. OXYCONTIN [Suspect]
     Active Substance: OXYCODONE HYDROCHLORIDE
     Indication: BACK PAIN
     Dosage: UNK
     Route: 065

REACTIONS (10)
  - Aggression [Unknown]
  - Road traffic accident [Unknown]
  - Overdose [Fatal]
  - Drowning [Fatal]
  - Abnormal behaviour [Unknown]
  - Mood altered [Unknown]
  - Drug dependence [Unknown]
  - Somnolence [Unknown]
  - Psychomotor skills impaired [Unknown]
  - Fatigue [Unknown]

NARRATIVE: CASE EVENT DATE: 20120430
